FAERS Safety Report 15528490 (Version 1)
Quarter: 2018Q4

REPORT INFORMATION
  Report Type: Spontaneous
  Country: PL (occurrence: PL)
  Receive Date: 20181018
  Receipt Date: 20181018
  Transmission Date: 20190205
  Serious: Yes (Hospitalization, Other)
  Sender: FDA-Public Use
  Company Number: PHHY2018PL125243

PATIENT
  Age: 67 Year
  Sex: Female

DRUGS (2)
  1. SANDOSTATIN LAR DEPOT [Suspect]
     Active Substance: OCTREOTIDE ACETATE
     Dosage: 30 MG, QMO
     Route: 030
     Dates: start: 201311
  2. SANDOSTATIN LAR DEPOT [Suspect]
     Active Substance: OCTREOTIDE ACETATE
     Indication: PANCREATIC NEUROENDOCRINE TUMOUR
     Dosage: 20 MG, QMO
     Route: 030
     Dates: start: 20120305

REACTIONS (21)
  - Abdominal tenderness [Unknown]
  - Injection site pruritus [Recovering/Resolving]
  - White blood cell count increased [Unknown]
  - Epigastric discomfort [Unknown]
  - Blood pressure increased [Unknown]
  - Vomiting [Unknown]
  - Malignant neoplasm progression [Unknown]
  - C-reactive protein increased [Unknown]
  - Blood chromogranin A increased [Unknown]
  - Flushing [Unknown]
  - Skin lesion [Recovering/Resolving]
  - Leukocyturia [Unknown]
  - Hot flush [Unknown]
  - Constipation [Unknown]
  - Abdominal pain upper [Unknown]
  - Metastases to lymph nodes [Unknown]
  - Pain [Unknown]
  - Malaise [Unknown]
  - Weight decreased [Unknown]
  - Haemangioma [Unknown]
  - Flatulence [Unknown]

NARRATIVE: CASE EVENT DATE: 201209
